FAERS Safety Report 4532793-7 (Version None)
Quarter: 2004Q4

REPORT INFORMATION
  Report Type: 
  Country: None (occurrence: None)
  Receive Date: 20041220
  Receipt Date: 20041214
  Transmission Date: 20050328
  Serious: Yes (Death)
  Sender: FDA-Public Use
  Company Number: 04-10-1484

PATIENT
  Age: 56 Year
  Sex: Female

DRUGS (8)
  1. CLOZAPINE [Suspect]
     Indication: SCHIZOPHRENIA
     Dosage: 700MG QD ORAL
     Route: 048
     Dates: start: 20040505, end: 20040901
  2. CLOZAPINE [Suspect]
  3. COGENTIN [Concomitant]
  4. ATIVAN [Concomitant]
  5. ASPIRIN [Concomitant]
  6. SYNTHROID [Concomitant]
  7. ZOCOR [Concomitant]
  8. ZETIA [Concomitant]

REACTIONS (6)
  - ABASIA [None]
  - FACIAL PALSY [None]
  - LIPOMA [None]
  - MALAISE [None]
  - PHARYNGITIS [None]
  - WHEEZING [None]
